FAERS Safety Report 18543801 (Version 3)
Quarter: 2022Q3

REPORT INFORMATION
  Report Type: Report from Study
  Country: CN (occurrence: None)
  Receive Date: 20201125
  Receipt Date: 20220712
  Transmission Date: 20221026
  Serious: Yes (Hospitalization)
  Sender: FDA-Public Use
  Company Number: CN-ROCHE-2255792

PATIENT
  Age: 47 Year
  Sex: Female
  Weight: 56 kg

DRUGS (49)
  1. ATEZOLIZUMAB [Suspect]
     Active Substance: ATEZOLIZUMAB
     Indication: Ovarian epithelial cancer
     Dosage: DATE OF MOST RECENT DOSE OF BLINDED ATEZOLIZUMAB PRIOR TO AE ONSET: 22/JAN/2019
     Route: 041
     Dates: start: 20181214
  2. BEVACIZUMAB [Suspect]
     Active Substance: BEVACIZUMAB
     Indication: Ovarian epithelial cancer
     Dosage: DATE OF MOST RECENT DOSE OF BEVACIZUMAB PRIOR TO AE ONSET: 22/JAN/2019
     Route: 042
     Dates: start: 20190104
  3. PACLITAXEL [Suspect]
     Active Substance: PACLITAXEL
     Indication: Ovarian epithelial cancer
     Dosage: DATE OF MOST RECENT DOSE OF PACLITAXEL (272 MG) PRIOR TO AE ONSET: 22/JAN/2019
     Route: 042
     Dates: start: 20181214
  4. CARBOPLATIN [Suspect]
     Active Substance: CARBOPLATIN
     Indication: Ovarian epithelial cancer
     Dosage: DATE OF MOST RECENT DOSE OF CARBOPLATIN (682 MG) PRIOR TO AE ONSET: 22/JAN/2019?AT A DOSE TO ACHIEVE
     Route: 042
     Dates: start: 20181214
  5. MAGNESIUM ISOGLYCYRRHIZINATE [Concomitant]
     Active Substance: MAGNESIUM ISOGLYCYRRHIZINATE
     Dates: start: 20190102, end: 20190105
  6. GLUTATHIONE REDUCED [Concomitant]
     Dates: start: 20190102, end: 20190102
  7. GLUTATHIONE REDUCED [Concomitant]
     Dates: start: 20190121, end: 20190122
  8. HERBALS\DIAMMONIUM GLYCYRRHIZINATE [Concomitant]
     Active Substance: HERBALS\DIAMMONIUM GLYCYRRHIZINATE
     Dates: start: 20190102, end: 20190105
  9. HERBALS\DIAMMONIUM GLYCYRRHIZINATE [Concomitant]
     Active Substance: HERBALS\DIAMMONIUM GLYCYRRHIZINATE
     Dates: start: 20190121, end: 20190122
  10. CREATINE [Concomitant]
     Active Substance: CREATINE
     Dates: start: 20190104, end: 20190104
  11. CREATINE [Concomitant]
     Active Substance: CREATINE
     Dates: start: 20190214, end: 20190216
  12. DEXAMETHASONE SODIUM PHOSPHATE [Concomitant]
     Active Substance: DEXAMETHASONE SODIUM PHOSPHATE
     Route: 042
     Dates: start: 20190104, end: 20190104
  13. DEXAMETHASONE SODIUM PHOSPHATE [Concomitant]
     Active Substance: DEXAMETHASONE SODIUM PHOSPHATE
     Route: 042
     Dates: start: 20190122, end: 20190122
  14. DEXAMETHASONE SODIUM PHOSPHATE [Concomitant]
     Active Substance: DEXAMETHASONE SODIUM PHOSPHATE
     Route: 042
  15. AMIFOSTINE [Concomitant]
     Active Substance: AMIFOSTINE
     Dates: start: 20190104, end: 20190104
  16. AMIFOSTINE [Concomitant]
     Active Substance: AMIFOSTINE
     Dates: start: 20190215, end: 20190215
  17. AMIFOSTINE [Concomitant]
     Active Substance: AMIFOSTINE
     Dates: start: 20190122, end: 20190122
  18. HEPARIN CALCIUM [Concomitant]
     Active Substance: HEPARIN CALCIUM
     Dates: start: 20190104, end: 20190104
  19. HEPARIN CALCIUM [Concomitant]
     Active Substance: HEPARIN CALCIUM
     Dates: start: 20190122, end: 20190122
  20. HEPARIN CALCIUM [Concomitant]
     Active Substance: HEPARIN CALCIUM
     Dates: start: 20190215, end: 20190215
  21. PANTOPRAZOLE SODIUM [Concomitant]
     Active Substance: PANTOPRAZOLE SODIUM
     Dates: start: 20190104, end: 20190104
  22. PANTOPRAZOLE SODIUM [Concomitant]
     Active Substance: PANTOPRAZOLE SODIUM
     Dates: start: 20190122, end: 20190122
  23. PANTOPRAZOLE SODIUM [Concomitant]
     Active Substance: PANTOPRAZOLE SODIUM
     Dates: start: 20190215, end: 20190215
  24. VITAMIN C [Concomitant]
     Active Substance: ASCORBIC ACID
     Dates: start: 20190104, end: 20190104
  25. CALCIUM GLUCONATE [Concomitant]
     Active Substance: CALCIUM GLUCONATE
     Dates: start: 20190104, end: 20190104
  26. CALCIUM GLUCONATE [Concomitant]
     Active Substance: CALCIUM GLUCONATE
     Dates: start: 20190122, end: 20190122
  27. VITAMIN B6 [Concomitant]
     Active Substance: PYRIDOXINE HYDROCHLORIDE
     Dates: start: 20190104, end: 20190104
  28. VITAMIN B6 [Concomitant]
     Active Substance: PYRIDOXINE HYDROCHLORIDE
     Dates: start: 20190122, end: 20190122
  29. VITAMIN B6 [Concomitant]
     Active Substance: PYRIDOXINE HYDROCHLORIDE
     Dates: start: 20190215, end: 20190215
  30. TROPISETRON HYDROCHLORIDE [Concomitant]
     Active Substance: TROPISETRON HYDROCHLORIDE
     Dates: start: 20190104, end: 20190104
  31. DEXAMETHASONE [Concomitant]
     Active Substance: DEXAMETHASONE
     Route: 048
     Dates: start: 20190103, end: 20190104
  32. DEXAMETHASONE [Concomitant]
     Active Substance: DEXAMETHASONE
     Route: 048
     Dates: start: 20190121, end: 20190122
  33. DEXAMETHASONE [Concomitant]
     Active Substance: DEXAMETHASONE
     Route: 048
     Dates: start: 20190214, end: 20190214
  34. DIPHENHYDRAMINE HYDROCHLORIDE [Concomitant]
     Active Substance: DIPHENHYDRAMINE HYDROCHLORIDE
     Dates: start: 20190104, end: 20190104
  35. DIPHENHYDRAMINE HYDROCHLORIDE [Concomitant]
     Active Substance: DIPHENHYDRAMINE HYDROCHLORIDE
     Dates: start: 20190122, end: 20190122
  36. DIPHENHYDRAMINE HYDROCHLORIDE [Concomitant]
     Active Substance: DIPHENHYDRAMINE HYDROCHLORIDE
     Dates: start: 20190215, end: 20190215
  37. PHOSPHOLIPID [Concomitant]
     Active Substance: PHOSPHOLIPID
     Dates: start: 20190107, end: 20190118
  38. CIMETIDINE [Concomitant]
     Active Substance: CIMETIDINE
     Dates: start: 20190122, end: 20190122
  39. CIMETIDINE [Concomitant]
     Active Substance: CIMETIDINE
     Dates: start: 20190215, end: 20190215
  40. AZASETRON HYDROCHLORIDE [Concomitant]
     Active Substance: AZASETRON HYDROCHLORIDE
     Dates: start: 20190122, end: 20190122
  41. COMPOUND AMMONIUM GLYCYRRHETATE [Concomitant]
     Dates: start: 20190121, end: 20190123
  42. COMPOUND AMMONIUM GLYCYRRHETATE [Concomitant]
     Dates: start: 20190214, end: 20190216
  43. CREATINE [Concomitant]
     Active Substance: CREATINE
     Dates: start: 20190121, end: 20190123
  44. INVERT SUGAR [Concomitant]
     Active Substance: INVERT SUGAR
  45. INVERT SUGAR [Concomitant]
     Active Substance: INVERT SUGAR
     Dates: start: 20190127, end: 20190129
  46. DAGES [CELLULASE;DIASTASE;PANCREATIN;PANCRELIPASE;PAPAIN;PEPSIN;URSODE [Concomitant]
     Dates: start: 20190129, end: 20190201
  47. CEFAZOLIN SODIUM [Concomitant]
     Active Substance: CEFAZOLIN SODIUM
     Dates: start: 20190127, end: 20190127
  48. INVERT SUGAR [Concomitant]
     Active Substance: INVERT SUGAR
     Dates: start: 20190127, end: 20190127
  49. MANNATIDE [Concomitant]
     Dates: start: 20190128, end: 20190131

REACTIONS (1)
  - Gastroenteritis [Recovered/Resolved]

NARRATIVE: CASE EVENT DATE: 20190127
